APPROVED DRUG PRODUCT: GYNODIOL
Active Ingredient: ESTRADIOL
Strength: 1.5MG
Dosage Form/Route: TABLET;ORAL
Application: A040212 | Product #003
Applicant: DURAMED PHARMACEUTICALS INC SUB BARR LABORATORIES INC
Approved: Dec 29, 1997 | RLD: No | RS: No | Type: DISCN